FAERS Safety Report 5221934-4 (Version None)
Quarter: 2007Q1

REPORT INFORMATION
  Report Type: 
  Country: None (occurrence: None)
  Receive Date: 20070129
  Receipt Date: 20060113
  Transmission Date: 20070707
  Serious: No
  Sender: FDA-Public Use
  Company Number: US-GLAXOSMITHKLINE-A0589701A

PATIENT
  Age: 67 Year
  Sex: Female

DRUGS (4)
  1. WELLBUTRIN [Suspect]
     Indication: DEPRESSION
     Route: 065
  2. PAXIL [Suspect]
     Indication: DEPRESSION
     Route: 065
  3. EFFEXOR [Suspect]
     Indication: DEPRESSION
     Route: 065
  4. SERZONE [Suspect]
     Indication: DRUG USE FOR UNKNOWN INDICATION
     Route: 065

REACTIONS (1)
  - WEIGHT INCREASED [None]
